FAERS Safety Report 7702969-6 (Version None)
Quarter: 2011Q3

REPORT INFORMATION
  Report Type: 
  Country: None (occurrence: None)
  Receive Date: 20110823
  Receipt Date: 20110817
  Transmission Date: 20111222
  Serious: Yes (Other)
  Sender: FDA-Public Use
  Company Number: PHHY2011MY64863

PATIENT
  Sex: Female

DRUGS (6)
  1. VITAMIN TAB [Concomitant]
  2. ACYCLOVIR [Concomitant]
  3. BACTRIM [Concomitant]
  4. PREDNISOLONE [Concomitant]
     Indication: IMMUNOSUPPRESSION
  5. CERTICAN [Suspect]
     Indication: IMMUNOSUPPRESSION
     Dosage: UNK
  6. CELLCEPT [Concomitant]
     Indication: IMMUNOSUPPRESSION

REACTIONS (3)
  - TRANSPLANT REJECTION [None]
  - NEPHROPATHY [None]
  - PROTEINURIA [None]
